FAERS Safety Report 7514273-X (Version None)
Quarter: 2011Q2

REPORT INFORMATION
  Report Type: 
  Country: None (occurrence: None)
  Receive Date: 20110601
  Receipt Date: 20110523
  Transmission Date: 20111010
  Serious: Yes (Other)
  Sender: FDA-Public Use
  Company Number: US-BIOGENIDEC-2011BI017291

PATIENT
  Age: 40 Year
  Sex: Female

DRUGS (2)
  1. TYSABRI [Suspect]
     Indication: MULTIPLE SCLEROSIS
     Route: 042
     Dates: start: 20081211, end: 20091216
  2. TYSABRI [Suspect]
     Route: 042
     Dates: start: 20100520

REACTIONS (2)
  - ABORTION SPONTANEOUS [None]
  - UTERINE CYST [None]
